FAERS Safety Report 7211383-1 (Version None)
Quarter: 2010Q4

REPORT INFORMATION
  Report Type: 
  Country: None (occurrence: None)
  Receive Date: 20101223
  Receipt Date: 20101210
  Transmission Date: 20110411
  Serious: Yes (Hospitalization, Other)
  Sender: FDA-Public Use
  Company Number: 012635

PATIENT
  Sex: Female

DRUGS (15)
  1. CIMZIA [Suspect]
     Indication: RHEUMATOID ARTHRITIS
     Dosage: 400 MG,  C87041 SUBCUTANEOUS, 400 MG 1X/4 WEEKS SUBCUTANEOUS
     Route: 058
     Dates: start: 20090625, end: 20091224
  2. CIMZIA [Suspect]
     Indication: RHEUMATOID ARTHRITIS
     Dosage: 400 MG,  C87041 SUBCUTANEOUS, 400 MG 1X/4 WEEKS SUBCUTANEOUS
     Route: 058
     Dates: start: 20100107
  3. PREDNISOLONE [Suspect]
     Indication: RHEUMATOID ARTHRITIS
     Dosage: 5 MG, ORAL
     Route: 048
     Dates: start: 20070524
  4. FOLIC ACID [Concomitant]
  5. REBAMIPIDE [Concomitant]
  6. METHOTREXATE [Concomitant]
  7. LOXOPROFEN SODIUM [Concomitant]
  8. INDOMETACIN [Concomitant]
  9. ALENDRONATE SODIUM [Concomitant]
  10. LANSOPRAZOLE [Concomitant]
  11. ROSUVASTATIN CALCIUM [Concomitant]
  12. ISONIAZID [Concomitant]
  13. OCTOTIAMINE [Concomitant]
  14. CEFINIR [Concomitant]
  15. PIRENOXINE [Concomitant]

REACTIONS (6)
  - ADHESION [None]
  - CATARACT SUBCAPSULAR [None]
  - CYSTITIS [None]
  - HAEMORRHAGIC OVARIAN CYST [None]
  - METRORRHAGIA [None]
  - UTERINE LEIOMYOMA [None]
